FAERS Safety Report 12658049 (Version 1)
Quarter: 2016Q3

REPORT INFORMATION
  Report Type: Report from Study
  Country: GB (occurrence: GB)
  Receive Date: 20160817
  Receipt Date: 20160817
  Transmission Date: 20161109
  Serious: Yes (Hospitalization)
  Sender: FDA-Public Use
  Company Number: GB-UCBSA-2016020843

PATIENT
  Sex: Female

DRUGS (2)
  1. CERTOLIZUMAB PEGOL [Suspect]
     Active Substance: CERTOLIZUMAB PEGOL
     Indication: RHEUMATOID ARTHRITIS
     Dosage: 200 MG, EV 2 WEEKS(QOW)
     Route: 058
     Dates: start: 20120912
  2. CERTOLIZUMAB PEGOL [Suspect]
     Active Substance: CERTOLIZUMAB PEGOL
     Dosage: UNK, EV 3 WEEKS

REACTIONS (2)
  - Hospitalisation [Unknown]
  - Intentional product misuse [Unknown]
